FAERS Safety Report 9278274 (Version 1)
Quarter: 2013Q2

REPORT INFORMATION
  Report Type: Report from Study
  Country: JP (occurrence: JP)
  Receive Date: 20130508
  Receipt Date: 20130508
  Transmission Date: 20140414
  Serious: Yes (Hospitalization)
  Sender: FDA-Public Use
  Company Number: JP-BRISTOL-MYERS SQUIBB COMPANY-14908164

PATIENT
  Age: 44 Year
  Sex: Female
  Weight: 66.3 kg

DRUGS (3)
  1. ERBITUX SOLN FOR INF 5MG/ML [Suspect]
     Indication: COLON CANCER
     Dosage: 450MG-1IN1WK:22DEC08-22DEC08-?INTRPT,16-NOV-2009(RECENT INF)37-INF.?RESUME:21-DEC-2009.
     Route: 041
     Dates: start: 20081215
  2. VENA [Concomitant]
     Indication: PREMEDICATION
     Dosage: TABS,INFUSION RELATED REACTION
     Route: 048
     Dates: start: 20081215
  3. DEXAMETHASONE SODIUM PHOSPHATE [Concomitant]
     Indication: PREMEDICATION
     Dosage: INFUSION RELATED REACTION?SKIPED WEEK:(8MG,1IN1WK)
     Route: 042
     Dates: start: 20081215

REACTIONS (1)
  - Diverticular perforation [Recovered/Resolved]
